FAERS Safety Report 12377938 (Version 1)
Quarter: 2016Q2

REPORT INFORMATION
  Report Type: Spontaneous
  Country: US (occurrence: US)
  Receive Date: 20160517
  Receipt Date: 20160517
  Transmission Date: 20160815
  Serious: No
  Sender: FDA-Public Use
  Company Number: US-JNJFOC-20160423610

PATIENT
  Age: 27 Year
  Sex: Male
  Weight: 68.95 kg

DRUGS (1)
  1. TYLENOL EXTRA STRENGTH [Suspect]
     Active Substance: ACETAMINOPHEN
     Indication: PAIN IN EXTREMITY
     Dosage: 4 TABLETS ONCE ON 23-APR-2016 AND 3 TABLETS ONCE ON 24-APR-2016
     Route: 048
     Dates: start: 20160423, end: 20160424

REACTIONS (2)
  - Incorrect dose administered [Unknown]
  - Drug ineffective [Unknown]

NARRATIVE: CASE EVENT DATE: 20160423
